FAERS Safety Report 4791312-0 (Version None)
Quarter: 2005Q4

REPORT INFORMATION
  Report Type: 
  Country: None (occurrence: None)
  Receive Date: 20051007
  Receipt Date: 20050926
  Transmission Date: 20060501
  Serious: Yes (Other)
  Sender: FDA-Public Use
  Company Number: SE-JNJFOC-20050905930

PATIENT
  Age: 43 Year
  Sex: Male

DRUGS (3)
  1. REMICADE [Suspect]
     Indication: CROHN'S DISEASE
     Route: 042
  2. PURINETHOL [Concomitant]
     Route: 065
  3. IMUREL [Concomitant]
     Route: 065

REACTIONS (3)
  - COLITIS ULCERATIVE [None]
  - NAUSEA [None]
  - TESTIS CANCER [None]
